FAERS Safety Report 5161165-X (Version None)
Quarter: 2006Q4

REPORT INFORMATION
  Report Type: 
  Country: None (occurrence: None)
  Receive Date: 20061121
  Receipt Date: 20061107
  Transmission Date: 20070319
  Serious: Yes (Other)
  Sender: FDA-Public Use
  Company Number: 2006137584

PATIENT
  Sex: Female

DRUGS (1)
  1. GABAPENTIN [Suspect]
     Indication: OSTEOPOROSIS
     Dosage: 300 MG
     Dates: start: 20061101

REACTIONS (2)
  - CONDITION AGGRAVATED [None]
  - OEDEMA PERIPHERAL [None]
